FAERS Safety Report 10238685 (Version 1)
Quarter: 2014Q2

REPORT INFORMATION
  Report Type: Spontaneous
  Country: US (occurrence: US)
  Receive Date: 20140616
  Receipt Date: 20140616
  Transmission Date: 20141212
  Serious: No
  Sender: FDA-Public Use
  Company Number: US-ENDO PHARMACEUTICALS INC.-OPCR20140113

PATIENT
  Sex: Female

DRUGS (2)
  1. OPANA ER 40MG [Suspect]
     Indication: PAIN
     Route: 048
     Dates: start: 2012
  2. FENTANYL [Suspect]
     Indication: PAIN
     Dosage: UNK
     Route: 065
     Dates: end: 2012

REACTIONS (2)
  - Blood prolactin increased [Not Recovered/Not Resolved]
  - Memory impairment [Not Recovered/Not Resolved]
